FAERS Safety Report 9236923 (Version 3)
Quarter: 2013Q2

REPORT INFORMATION
  Report Type: Spontaneous
  Country: IT (occurrence: IT)
  Receive Date: 20130417
  Receipt Date: 20130521
  Transmission Date: 20140414
  Serious: Yes (Death, Life-Threatening)
  Sender: FDA-Public Use
  Company Number: IT-UCBSA-082869

PATIENT
  Age: 81 Year
  Sex: Female
  Weight: 68 kg

DRUGS (7)
  1. VIMPAT [Suspect]
     Indication: EPILEPSY
     Dosage: DAILY
     Route: 048
     Dates: start: 20110609, end: 20121004
  2. CALCIUM CARBONATE [Concomitant]
  3. TOPAMAX [Concomitant]
     Dosage: DOSE STRENGTH: (50MG AND 100MG)
     Route: 048
  4. ACTONEL [Concomitant]
     Route: 048
  5. TEGRETOL [Concomitant]
     Dosage: ONE DF
     Dates: start: 201210
  6. TEGRETOL [Concomitant]
     Dosage: 600MG
     Dates: start: 201210, end: 201210
  7. TEGRETOL [Concomitant]
     Dates: end: 20110609

REACTIONS (4)
  - Amnesia [Fatal]
  - Transient ischaemic attack [Fatal]
  - Convulsion [Fatal]
  - Encephalopathy [Fatal]
